FAERS Safety Report 5374046-3 (Version None)
Quarter: 2007Q2

REPORT INFORMATION
  Report Type: 
  Country: None (occurrence: None)
  Receive Date: 20070627
  Receipt Date: 20070618
  Transmission Date: 20071010
  Serious: Yes (Disabling, Other)
  Sender: FDA-Public Use
  Company Number: 015328

PATIENT
  Age: 50 Year
  Sex: Female

DRUGS (1)
  1. CYCLOSPORINE [Suspect]
     Indication: NEPHROTIC SYNDROME
     Dosage: ORAL
     Route: 048
     Dates: start: 20060201

REACTIONS (3)
  - BLINDNESS [None]
  - OPTIC ATROPHY [None]
  - VISUAL FIELD DEFECT [None]
